FAERS Safety Report 21027379 (Version 1)
Quarter: 2022Q2

REPORT INFORMATION
  Report Type: Report from Study
  Country: CA (occurrence: CA)
  Receive Date: 20220630
  Receipt Date: 20220630
  Transmission Date: 20220721
  Serious: Yes (Hospitalization)
  Sender: FDA-Public Use
  Company Number: CA-ABBVIE-22K-028-4442038-00

PATIENT
  Age: 68 Year
  Sex: Female

DRUGS (3)
  1. RINVOQ [Suspect]
     Active Substance: UPADACITINIB
     Indication: Rheumatoid arthritis
     Route: 048
     Dates: start: 20210709
  2. SPIRONOLACTONE [Suspect]
     Active Substance: SPIRONOLACTONE
     Indication: Product used for unknown indication
     Route: 065
  3. FUROSEMIDE [Suspect]
     Active Substance: FUROSEMIDE
     Indication: Product used for unknown indication
     Route: 065

REACTIONS (11)
  - Illness [Unknown]
  - Headache [Unknown]
  - Asthenia [Unknown]
  - Skin wrinkling [Unknown]
  - Feeling abnormal [Unknown]
  - Sluggishness [Unknown]
  - Weight decreased [Unknown]
  - Memory impairment [Unknown]
  - COVID-19 [Unknown]
  - Muscular weakness [Unknown]
  - Walking aid user [Unknown]

NARRATIVE: CASE EVENT DATE: 20220101
